FAERS Safety Report 9350332 (Version 1)
Quarter: 2013Q2

REPORT INFORMATION
  Report Type: Spontaneous
  Country: US (occurrence: None)
  Receive Date: 20130613
  Receipt Date: 20130613
  Transmission Date: 20140414
  Serious: No
  Sender: FDA-Public Use
  Company Number: None

PATIENT
  Sex: 0

DRUGS (2)
  1. ZOLPIDEM [Suspect]
     Indication: POST-TRAUMATIC STRESS DISORDER
     Route: 048
     Dates: start: 20130508, end: 20130522
  2. ZOLPIDEM [Suspect]
     Indication: MAJOR DEPRESSION
     Route: 048
     Dates: start: 20130508, end: 20130522

REACTIONS (2)
  - Product substitution issue [None]
  - Drug ineffective [None]
